FAERS Safety Report 15206080 (Version 5)
Quarter: 2018Q4

REPORT INFORMATION
  Report Type: Spontaneous
  Country: JP (occurrence: JP)
  Receive Date: 20180727
  Receipt Date: 20181226
  Transmission Date: 20190204
  Serious: Yes (Death, Hospitalization, Other)
  Sender: FDA-Public Use
  Company Number: JP-009507513-1807JPN002248J

PATIENT
  Age: 75 Year
  Sex: Male
  Weight: 48 kg

DRUGS (9)
  1. LANSOPRAZOLE. [Suspect]
     Active Substance: LANSOPRAZOLE
     Dosage: UNK
     Route: 048
  2. SELBEX [Concomitant]
     Active Substance: TEPRENONE
     Dosage: UNK
     Route: 048
  3. FENTOS [Concomitant]
     Active Substance: FENTANYL
     Dosage: UNK
  4. CALONAL [Concomitant]
     Active Substance: ACETAMINOPHEN
     Dosage: UNK
     Route: 048
  5. KEYTRUDA [Suspect]
     Active Substance: PEMBROLIZUMAB
     Indication: NON-SMALL CELL LUNG CANCER
     Dosage: 200 MILLIGRAM, Q3W
     Route: 041
     Dates: start: 20180621, end: 20180621
  6. TRYPTANOL [Suspect]
     Active Substance: AMITRIPTYLINE
     Indication: ANALGESIC THERAPY
     Dosage: 10 MILLIGRAM, QD
     Route: 048
     Dates: start: 20180619, end: 20180627
  7. CEFMETAZOLE [Suspect]
     Active Substance: CEFMETAZOLE
     Indication: PROPHYLAXIS
     Dosage: 1 GRAM, TID
     Route: 042
     Dates: start: 20180621, end: 20180622
  8. MAGMITT [Concomitant]
     Active Substance: MAGNESIUM OXIDE
     Dosage: UNK
     Route: 048
  9. ABSTRAL [Concomitant]
     Active Substance: FENTANYL CITRATE
     Dosage: UNK
     Route: 048

REACTIONS (5)
  - Drug-induced liver injury [Recovering/Resolving]
  - Primary biliary cholangitis [Unknown]
  - Myocardial infarction [Fatal]
  - Cholangitis sclerosing [Not Recovered/Not Resolved]
  - Eosinophil count increased [Recovering/Resolving]

NARRATIVE: CASE EVENT DATE: 2018
